FAERS Safety Report 21395845 (Version 1)
Quarter: 2022Q3

REPORT INFORMATION
  Report Type: Spontaneous
  Country: US (occurrence: None)
  Receive Date: 20220929
  Receipt Date: 20220929
  Transmission Date: 20221027
  Serious: No
  Sender: FDA-Public Use
  Company Number: None

PATIENT
  Age: 22 Year
  Sex: Female
  Weight: 67.5 kg

DRUGS (3)
  1. ZAFEMY [Suspect]
     Active Substance: ETHINYL ESTRADIOL\NORELGESTROMIN
     Indication: Menstruation irregular
     Dosage: OTHER QUANTITY : 1 PATCH(ES);?OTHER FREQUENCY : ONCE PER WEEK;?
     Route: 061
     Dates: start: 20220822
  2. Norelgestromin and ethinyl estradiol transdermal system [Concomitant]
  3. SERTRALINE [Concomitant]
     Active Substance: SERTRALINE HYDROCHLORIDE

REACTIONS (5)
  - Dysmenorrhoea [None]
  - Intermenstrual bleeding [None]
  - Bowel movement irregularity [None]
  - Product adhesion issue [None]
  - Product substitution issue [None]

NARRATIVE: CASE EVENT DATE: 20220929
